FAERS Safety Report 4714104-7 (Version None)
Quarter: 2005Q2

REPORT INFORMATION
  Report Type: 
  Country: None (occurrence: None)
  Receive Date: 20050630
  Receipt Date: 20050124
  Transmission Date: 20051028
  Serious: Yes (Other)
  Sender: FDA-Public Use
  Company Number: 393642

PATIENT
  Sex: Male

DRUGS (2)
  1. ROFERON-A [Suspect]
     Indication: HEPATITIS C
     Dosage: 3 PER WEEK OTHER
     Dates: start: 20000615
  2. UNKNOWN TABLET [Concomitant]

REACTIONS (1)
  - HEPATITIS C [None]
